FAERS Safety Report 6124150-7 (Version None)
Quarter: 2009Q1

REPORT INFORMATION
  Report Type: 
  Country: None (occurrence: None)
  Receive Date: 20090319
  Receipt Date: 20090311
  Transmission Date: 20090719
  Serious: Yes (Hospitalization, Other)
  Sender: FDA-Public Use
  Company Number: US-ABBOTT-09P-163-0560855-00

PATIENT
  Sex: Male
  Weight: 68.1 kg

DRUGS (11)
  1. TRICOR [Suspect]
     Indication: DRUG USE FOR UNKNOWN INDICATION
  2. SORIATANE [Suspect]
     Indication: PSORIASIS
     Dates: start: 20080301, end: 20081120
  3. ADVAIR HFA [Suspect]
     Indication: DRUG USE FOR UNKNOWN INDICATION
  4. SINGULAIR [Suspect]
     Indication: DRUG USE FOR UNKNOWN INDICATION
  5. LIPITOR [Suspect]
     Indication: DRUG USE FOR UNKNOWN INDICATION
  6. METOPROLOL TARTRATE [Suspect]
     Indication: DRUG USE FOR UNKNOWN INDICATION
  7. PLAVIX [Suspect]
     Indication: ANTIPLATELET THERAPY
  8. ASPIRIN [Suspect]
     Indication: ANTIPLATELET THERAPY
  9. ASPIRIN [Suspect]
  10. ALBUTEROL [Concomitant]
     Indication: ASTHMA
  11. ZETIA [Concomitant]
     Indication: DYSLIPIDAEMIA

REACTIONS (6)
  - CORONARY ARTERY STENOSIS [None]
  - EPISTAXIS [None]
  - HYPOTENSION [None]
  - MYOCARDIAL INFARCTION [None]
  - VENTRICULAR HYPOKINESIA [None]
  - WEIGHT DECREASED [None]
